FAERS Safety Report 10283652 (Version 2)
Quarter: 2014Q3

REPORT INFORMATION
  Report Type: Spontaneous
  Country: IT (occurrence: IT)
  Receive Date: 20140708
  Receipt Date: 20140722
  Transmission Date: 20150326
  Serious: Yes (Hospitalization)
  Sender: FDA-Public Use
  Company Number: PHHY2014IT082734

PATIENT
  Age: 74 Year
  Sex: Male

DRUGS (3)
  1. CIPROFLOXACIN. [Suspect]
     Active Substance: CIPROFLOXACIN
     Indication: URINARY TRACT INFECTION
     Dosage: 1500 MG, QD
     Route: 048
     Dates: start: 20140518, end: 20140527
  2. KEPPRA [Suspect]
     Active Substance: LEVETIRACETAM
     Indication: EPILEPSY
     Dosage: 1000 MG, QD
     Route: 048
     Dates: start: 20120101, end: 20140625
  3. LASIX [Suspect]
     Active Substance: FUROSEMIDE
     Indication: RENAL FAILURE CHRONIC
     Dosage: UNK UKN, UNK
     Route: 048
     Dates: start: 20120101, end: 20140602

REACTIONS (3)
  - Epilepsy [Recovering/Resolving]
  - Cardiopulmonary failure [Recovering/Resolving]
  - Hyponatraemia [Recovering/Resolving]

NARRATIVE: CASE EVENT DATE: 20140527
